FAERS Safety Report 23183629 (Version 1)
Quarter: 2023Q4

REPORT INFORMATION
  Report Type: Spontaneous
  Country: US (occurrence: US)
  Receive Date: 20231114
  Receipt Date: 20231114
  Transmission Date: 20240110
  Serious: No
  Sender: FDA-Public Use
  Company Number: US-PFIZER INC-202300356920

PATIENT
  Age: 53 Year
  Sex: Female

DRUGS (7)
  1. IBRANCE [Suspect]
     Active Substance: PALBOCICLIB
     Dosage: 125 MG, CYCLIC, DAILY FOR 21 DAYS FOLLOWED BY 7 DAYS OFF
     Dates: start: 20230706
  2. DILTIAZEM [Concomitant]
     Active Substance: DILTIAZEM
  3. METOPROLOL SUCCINATE [Concomitant]
     Active Substance: METOPROLOL SUCCINATE
  4. IBUPROFEN [Concomitant]
     Active Substance: IBUPROFEN
  5. COMPAZINE [Concomitant]
     Active Substance: PROCHLORPERAZINE MALEATE
  6. ANASTROZOLE [Concomitant]
     Active Substance: ANASTROZOLE
     Dosage: UNK
  7. OMEPRAZOLE [Concomitant]
     Active Substance: OMEPRAZOLE
     Dosage: UNK

REACTIONS (4)
  - Increased upper airway secretion [Unknown]
  - Dysphagia [Unknown]
  - Pain [Unknown]
  - Pain in extremity [Unknown]
